FAERS Safety Report 7761232-8 (Version None)
Quarter: 2011Q3

REPORT INFORMATION
  Report Type: 
  Country: None (occurrence: None)
  Receive Date: 20110920
  Receipt Date: 20110908
  Transmission Date: 20111222
  Serious: Yes (Other)
  Sender: FDA-Public Use
  Company Number: BR-JNJFOC-20110904567

PATIENT
  Age: 58 Year
  Sex: Female
  Weight: 89 kg

DRUGS (9)
  1. MODURETIC 5-50 [Concomitant]
     Indication: HYPERTENSION
     Route: 065
  2. FLUOXETINE [Suspect]
     Indication: PSORIATIC ARTHROPATHY
     Route: 065
  3. LOSARTAN POTASSIUM [Concomitant]
     Indication: HYPERTENSION
     Route: 065
  4. MELOXICAM [Suspect]
     Indication: PSORIATIC ARTHROPATHY
     Route: 065
  5. REMICADE [Suspect]
     Indication: PSORIATIC ARTHROPATHY
     Route: 042
  6. TYLENOL-500 [Concomitant]
     Indication: ARTHRALGIA
     Route: 065
  7. PRESSAT [Concomitant]
     Indication: HYPERTENSION
     Route: 065
  8. OMEPRAZOLE [Concomitant]
     Indication: GASTRIC DISORDER
     Route: 065
  9. CORTISONE ACETATE [Suspect]
     Indication: PSORIATIC ARTHROPATHY
     Route: 065

REACTIONS (8)
  - PSORIASIS [None]
  - CHOLELITHIASIS [None]
  - ARTHRALGIA [None]
  - FEELING JITTERY [None]
  - BLOOD GLUCOSE FLUCTUATION [None]
  - PRURITUS [None]
  - RENAL IMPAIRMENT [None]
  - PSORIATIC ARTHROPATHY [None]
